FAERS Safety Report 9441726 (Version 5)
Quarter: 2013Q4

REPORT INFORMATION
  Report Type: Report from Study
  Country: AU (occurrence: AU)
  Receive Date: 20130806
  Receipt Date: 20131105
  Transmission Date: 20140711
  Serious: Yes (Hospitalization)
  Sender: FDA-Public Use
  Company Number: AU-PFIZER INC-2013205228

PATIENT
  Age: 65 Year
  Sex: Female

DRUGS (14)
  1. TOFACITINIB CITRATE [Suspect]
     Indication: RENAL TRANSPLANT
     Dosage: 5 MG, 2X/DAY
     Route: 048
     Dates: start: 20090814, end: 20101122
  2. TACROLIMUS [Concomitant]
     Indication: RENAL TRANSPLANT
     Dosage: 1.5 MG, 2X/DAY
     Route: 048
     Dates: start: 20110415
  3. PREDNISONE [Concomitant]
     Indication: RENAL TRANSPLANT
     Dosage: 5 MG, 1X/DAY
     Route: 048
     Dates: start: 20080816
  4. AZATHIOPRINE [Concomitant]
     Indication: RENAL TRANSPLANT
     Dosage: 50 MG, 1X/DAY
     Route: 048
     Dates: start: 20130424
  5. CALCITRIOL [Concomitant]
     Indication: HYPERPARATHYROIDISM SECONDARY
     Dosage: UNK
     Dates: start: 20080516
  6. PARIET [Concomitant]
     Indication: PROPHYLAXIS
     Dosage: UNK
     Dates: start: 20081028
  7. PAROXETINE [Concomitant]
     Indication: DEPRESSION
     Dosage: UNK
     Dates: start: 20101219
  8. DIAZEPAM [Concomitant]
     Indication: DEPRESSION
     Dosage: UNK
     Dates: start: 20080525
  9. PANADOL OSTEO [Concomitant]
     Indication: OSTEOPOROSIS
     Dosage: UNK
     Dates: start: 20080515
  10. BACTRIM [Concomitant]
     Indication: PROPHYLAXIS
     Dosage: UNK
     Dates: start: 20130203
  11. MIRTAZAPINE [Concomitant]
     Indication: DEPRESSION
     Dosage: UNK
     Dates: start: 20130201
  12. VITAMIN D [Concomitant]
     Indication: PROPHYLAXIS
     Dosage: UNK
     Dates: start: 20110101
  13. CRANBERRY [Concomitant]
     Indication: PROPHYLAXIS
     Dosage: UNK
     Dates: start: 20130301
  14. KRILL OIL [Concomitant]
     Indication: PROPHYLAXIS
     Dosage: UNK
     Dates: start: 20110101

REACTIONS (1)
  - Renal cell carcinoma [Recovered/Resolved]
